FAERS Safety Report 5574261-X (Version None)
Quarter: 2007Q4

REPORT INFORMATION
  Report Type: 
  Country: None (occurrence: None)
  Receive Date: 20071221
  Receipt Date: 20071221
  Transmission Date: 20080405
  Serious: No
  Sender: FDA-Public Use
  Company Number: None

PATIENT
  Age: 52 Year
  Sex: Male
  Weight: 88.4514 kg

DRUGS (2)
  1. LEXAPRO [Suspect]
     Indication: MIGRAINE
     Dosage: 10MG PO DAILY
     Route: 048
  2. LEXAPRO [Suspect]
     Indication: STRESS
     Dosage: 10MG PO DAILY
     Route: 048

REACTIONS (4)
  - BLOOD PRESSURE INCREASED [None]
  - DIZZINESS [None]
  - DRY MOUTH [None]
  - SEROTONIN SYNDROME [None]
